FAERS Safety Report 6181064-4 (Version None)
Quarter: 2009Q2

REPORT INFORMATION
  Report Type: 
  Country: None (occurrence: None)
  Receive Date: 20090506
  Receipt Date: 20090426
  Transmission Date: 20091009
  Serious: Yes (Hospitalization, Other)
  Sender: FDA-Public Use
  Company Number: US-AMGEN-TCS344561

PATIENT
  Sex: Female

DRUGS (3)
  1. ENBREL [Suspect]
     Indication: RHEUMATOID ARTHRITIS
     Route: 058
     Dates: start: 20040401
  2. DOXYCYCLINE [Concomitant]
     Indication: DRUG USE FOR UNKNOWN INDICATION
  3. VANCOMYCIN HCL [Concomitant]
     Indication: DRUG USE FOR UNKNOWN INDICATION

REACTIONS (9)
  - ARTHRALGIA [None]
  - CELLULITIS [None]
  - COLONIC POLYP [None]
  - DIARRHOEA [None]
  - DIVERTICULITIS [None]
  - DRUG HYPERSENSITIVITY [None]
  - GASTROOESOPHAGEAL REFLUX DISEASE [None]
  - HYPERTENSION [None]
  - NAUSEA [None]
